FAERS Safety Report 6340956-3 (Version None)
Quarter: 2009Q3

REPORT INFORMATION
  Report Type: 
  Country: None (occurrence: None)
  Receive Date: 20090904
  Receipt Date: 20090824
  Transmission Date: 20100115
  Serious: Yes (Other)
  Sender: FDA-Public Use
  Company Number: JP-GENENTECH-289486

PATIENT
  Age: 45 Year
  Sex: Female

DRUGS (2)
  1. TRASTUZUMAB [Suspect]
     Indication: BREAST CANCER METASTATIC
     Dosage: 4 MG/KG, UNK
     Route: 065
  2. CAPECITABINE [Suspect]
     Indication: BREAST CANCER METASTATIC
     Dosage: 828.5 MG/M2, BID
     Route: 065

REACTIONS (1)
  - PALMAR-PLANTAR ERYTHRODYSAESTHESIA SYNDROME [None]
